FAERS Safety Report 7819522-6 (Version None)
Quarter: 2011Q4

REPORT INFORMATION
  Report Type: 
  Country: None (occurrence: None)
  Receive Date: 20111018
  Receipt Date: 20110203
  Transmission Date: 20120403
  Serious: No
  Sender: FDA-Public Use
  Company Number: US-ASTRAZENECA-2010SE59031

PATIENT
  Age: 76 Year
  Sex: Female

DRUGS (5)
  1. SYMBICORT [Suspect]
     Dosage: 160/4.5 2PUFF BID FOR 2-3 WEEKS
     Route: 055
  2. VICODIN [Concomitant]
  3. TRAZODONE HCL [Concomitant]
  4. LOMOTIL [Concomitant]
  5. KLONOPIN [Concomitant]

REACTIONS (8)
  - BACK PAIN [None]
  - RENAL PAIN [None]
  - DIARRHOEA [None]
  - FLATULENCE [None]
  - DYSPEPSIA [None]
  - ASTHENIA [None]
  - PELVIC PAIN [None]
  - TREMOR [None]
